FAERS Safety Report 10419731 (Version 3)
Quarter: 2014Q4

REPORT INFORMATION
  Report Type: Spontaneous
  Country: JP (occurrence: JP)
  Receive Date: 20140829
  Receipt Date: 20141011
  Transmission Date: 20150528
  Serious: Yes (Hospitalization)
  Sender: FDA-Public Use
  Company Number: JP-ABBVIE-14K-087-1276595-00

PATIENT
  Age: 59 Year
  Sex: Male

DRUGS (9)
  1. RHEUMATREX [Suspect]
     Active Substance: METHOTREXATE SODIUM
     Indication: RHEUMATOID ARTHRITIS
     Route: 048
     Dates: start: 201306, end: 20140114
  2. ISONIAZID. [Suspect]
     Active Substance: ISONIAZID
     Indication: LATENT TUBERCULOSIS
  3. HUMIRA [Suspect]
     Active Substance: ADALIMUMAB
     Indication: RHEUMATOID ARTHRITIS
     Route: 058
     Dates: start: 20140805, end: 20140819
  4. ISONIAZID. [Suspect]
     Active Substance: ISONIAZID
     Indication: PROPHYLAXIS
  5. RHEUMATREX [Suspect]
     Active Substance: METHOTREXATE SODIUM
     Indication: RHEUMATIC DISORDER
     Route: 048
     Dates: start: 20140114, end: 20140630
  6. ISONIAZID. [Suspect]
     Active Substance: ISONIAZID
     Indication: HEPATITIS B
     Route: 048
     Dates: start: 20140709, end: 20140822
  7. FOLIC ACID. [Concomitant]
     Active Substance: FOLIC ACID
     Indication: ADVERSE DRUG REACTION
  8. RHEUMATREX [Suspect]
     Active Substance: METHOTREXATE SODIUM
     Route: 048
     Dates: start: 20140728, end: 20140822
  9. FOLIC ACID. [Concomitant]
     Active Substance: FOLIC ACID
     Indication: PROPHYLAXIS
     Route: 048
     Dates: start: 20131216, end: 20140822

REACTIONS (4)
  - Cholestasis [Unknown]
  - Jaundice [Unknown]
  - Systemic inflammatory response syndrome [Unknown]
  - Hepatic amoebiasis [Recovering/Resolving]

NARRATIVE: CASE EVENT DATE: 2014
